FAERS Safety Report 9838382 (Version 1)
Quarter: 2013Q4

REPORT INFORMATION
  Report Type: Spontaneous
  Country: US (occurrence: None)
  Receive Date: 20131205
  Receipt Date: 20131205
  Transmission Date: 20140711
  Serious: Yes (Other)
  Sender: FDA-Public Use
  Company Number: 163-POMAL-13093472

PATIENT
  Age: 66 Year
  Sex: Female
  Weight: 79.38 kg

DRUGS (6)
  1. POMALYST [Suspect]
     Indication: PLASMA CELL MYELOMA
     Route: 048
     Dates: start: 201306
  2. LOVENOX (HEPARIN-F-RACTION, SODIUM SALT) [Concomitant]
  3. DEXAMETHASONE (DEXAMETHASONE) [Concomitant]
  4. CYCLOPHOSPHAMIEDE (CYCLOPHOSPHAMIDE) [Concomitant]
  5. MECLIZINE (MECLIZINE) [Concomitant]
  6. ENOXAPARIN (ENOXAPARIN) [Concomitant]

REACTIONS (4)
  - Thrombosis [None]
  - Vertigo [None]
  - Nausea [None]
  - Vomiting [None]
